FAERS Safety Report 9960800 (Version 1)
Quarter: 2014Q1

REPORT INFORMATION
  Report Type: Report from Study
  Country: US (occurrence: US)
  Receive Date: 20140305
  Receipt Date: 20140305
  Transmission Date: 20141002
  Serious: No
  Sender: FDA-Public Use
  Company Number: US-ABBVIE-13P-163-1109277-00

PATIENT
  Age: 42 Year
  Sex: Male
  Weight: 108.05 kg

DRUGS (5)
  1. HUMIRA [Suspect]
     Indication: ARTHRITIS
     Dates: start: 2012, end: 201304
  2. LISINPRIOL HCTZ [Concomitant]
     Indication: HYPERTENSION
  3. NEURONTIN [Concomitant]
     Indication: NEUROPATHY PERIPHERAL
  4. FISH OIL [Concomitant]
     Indication: SUPPLEMENTATION THERAPY
  5. TIZANIDINE [Concomitant]
     Indication: MUSCLE RELAXANT THERAPY

REACTIONS (5)
  - Joint swelling [Not Recovered/Not Resolved]
  - Finger deformity [Not Recovered/Not Resolved]
  - Knee deformity [Not Recovered/Not Resolved]
  - Joint swelling [Not Recovered/Not Resolved]
  - Local swelling [Not Recovered/Not Resolved]
